FAERS Safety Report 26125115 (Version 1)
Quarter: 2025Q4

REPORT INFORMATION
  Report Type: Spontaneous
  Country: US (occurrence: US)
  Receive Date: 20251205
  Receipt Date: 20251205
  Transmission Date: 20260117
  Serious: Yes (Hospitalization, Other)
  Sender: GLENMARK
  Company Number: US-MLMSERVICE-20251119-PI718501-00201-1

PATIENT
  Age: 4 Decade
  Sex: Female

DRUGS (2)
  1. LIDOCAINE [Suspect]
     Active Substance: LIDOCAINE
     Indication: Cancer pain
     Dosage: UNK
     Route: 061
  2. LIDOCAINE [Suspect]
     Active Substance: LIDOCAINE
     Dosage: UNK; DOSE REDUCED
     Route: 061

REACTIONS (7)
  - Local anaesthetic systemic toxicity [Recovered/Resolved]
  - Acute psychosis [Unknown]
  - Agitation [Recovered/Resolved]
  - Paranoia [Unknown]
  - Hallucination, auditory [Unknown]
  - Drug level above therapeutic [Unknown]
  - Seizure [Unknown]
